FAERS Safety Report 8858736 (Version 1)
Quarter: 2012Q4

REPORT INFORMATION
  Report Type: Spontaneous
  Country: US (occurrence: None)
  Receive Date: 20121023
  Receipt Date: 20121023
  Transmission Date: 20130627
  Serious: Yes (Life-Threatening, Hospitalization)
  Sender: FDA-Public Use
  Company Number: None

PATIENT
  Age: 26 Year
  Sex: Female
  Weight: 63.5 kg

DRUGS (1)
  1. MIRENA [Suspect]
     Indication: BIRTH CONTROL
     Dosage: 5 or 6 days
06/01/2008   06/06/2008
     Dates: start: 20080601, end: 20080606

REACTIONS (3)
  - Uterine perforation [None]
  - Device dislocation [None]
  - Medical device complication [None]
